FAERS Safety Report 9090181 (Version 1)
Quarter: 2013Q1

REPORT INFORMATION
  Report Type: Other
  Country: JP (occurrence: JP)
  Receive Date: 20130201
  Receipt Date: 20130201
  Transmission Date: 20140127
  Serious: Yes (Other)
  Sender: FDA-Public Use
  Company Number: JP-BRISTOL-MYERS SQUIBB COMPANY-17305277

PATIENT
  Age: 23 Year
  Sex: Female

DRUGS (3)
  1. BLEOMYCIN SULFATE [Suspect]
     Indication: OVARIAN NEOPLASM
     Dosage: DAYS 2,9,16
  2. CISPLATIN [Suspect]
     Indication: OVARIAN NEOPLASM
     Dosage: DAYS 1-5
  3. ETOPOSIDE [Suspect]
     Indication: OVARIAN NEOPLASM
     Dosage: DAYS 1-5

REACTIONS (4)
  - Pulmonary fibrosis [Not Recovered/Not Resolved]
  - Tumour lysis syndrome [Unknown]
  - Renal impairment [Unknown]
  - Left ventricular dysfunction [Unknown]
